FAERS Safety Report 24221410 (Version 3)
Quarter: 2024Q4

REPORT INFORMATION
  Report Type: Report from Study
  Country: CN (occurrence: CN)
  Receive Date: 20240819
  Receipt Date: 20241203
  Transmission Date: 20250115
  Serious: Yes (Other)
  Sender: PFIZER
  Company Number: CN-TAKEDA-2024TUS057830

PATIENT
  Age: 35 Year
  Sex: Male
  Weight: 92 kg

DRUGS (23)
  1. BRENTUXIMAB VEDOTIN [Suspect]
     Active Substance: BRENTUXIMAB VEDOTIN
     Indication: Hodgkin^s disease
     Dosage: 100 MG, EVERY 3 WEEKS
     Route: 041
     Dates: start: 20240529
  2. NIFEDIPINE [Concomitant]
     Active Substance: NIFEDIPINE
     Indication: Hypertension
     Dosage: 30 MILLIGRAM, QD
     Route: 048
     Dates: start: 2020
  3. FENOFIBRATE [Concomitant]
     Active Substance: FENOFIBRATE
     Indication: Hyperlipidaemia
     Dosage: 0.20 GRAM, QD
     Route: 048
     Dates: start: 20240529
  4. ATORVASTATIN CALCIUM TRIHYDRATE [Concomitant]
     Active Substance: ATORVASTATIN CALCIUM TRIHYDRATE
     Indication: Hyperlipidaemia
     Dosage: 20 MILLIGRAM
     Route: 048
     Dates: start: 20240529
  5. GLUCOPHAGE [Concomitant]
     Active Substance: METFORMIN HYDROCHLORIDE
     Indication: Diabetes mellitus
     Dosage: 0.5 MILLIGRAM, QD
     Route: 048
     Dates: start: 20240529
  6. TROPISETRON HYDROCHLORIDE [Concomitant]
     Active Substance: TROPISETRON HYDROCHLORIDE
     Indication: Prophylaxis of nausea and vomiting
     Dosage: 5 MILLILITER, QD
     Route: 042
     Dates: start: 20240530, end: 20240603
  7. POTASSIUM CHLORIDE [Concomitant]
     Active Substance: POTASSIUM CHLORIDE
     Indication: Mineral supplementation
     Dosage: 15 MILLILITER, QD
     Route: 042
     Dates: start: 20240530, end: 20240602
  8. VITAMIN C [Concomitant]
     Active Substance: ASCORBIC ACID
     Indication: Prophylaxis against dehydration
     Dosage: 2 GRAM, QD
     Route: 042
     Dates: start: 20240530, end: 20240602
  9. SODIUM BICARBONATE [Concomitant]
     Active Substance: SODIUM BICARBONATE
     Indication: Prophylaxis
     Dosage: 100 MILLILITER, QD
     Route: 042
     Dates: start: 20240530, end: 20240602
  10. GLUTATHIONE [Concomitant]
     Active Substance: GLUTATHIONE
     Indication: Renal disorder prophylaxis
     Dosage: 2.40 GRAM, QD
     Route: 042
     Dates: start: 20240530, end: 20240603
  11. GLUTATHIONE [Concomitant]
     Active Substance: GLUTATHIONE
     Indication: Prophylaxis
  12. FUROSEMIDE [Concomitant]
     Active Substance: FUROSEMIDE
     Indication: Polyuria
     Dosage: 10 MILLIGRAM, QD
     Route: 042
     Dates: start: 20240530, end: 20240603
  13. POTASSIUM CHLORIDE [Concomitant]
     Active Substance: POTASSIUM CHLORIDE
     Indication: Mineral supplementation
     Dosage: 1 GRAM, QD
     Route: 048
     Dates: start: 20240530, end: 20240603
  14. ETOPOSIDE [Concomitant]
     Active Substance: ETOPOSIDE
     Indication: Lymphoma
     Dosage: 0.10 GRAM, QD
     Route: 042
     Dates: start: 20240530, end: 20240601
  15. ESOMEPRAZOLE SODIUM [Concomitant]
     Active Substance: ESOMEPRAZOLE SODIUM
     Indication: Prophylaxis
     Dosage: 40 MILLIGRAM, BID
     Route: 042
     Dates: start: 20240530, end: 20240603
  16. MOXIFLOXACIN HYDROCHLORIDE [Concomitant]
     Active Substance: MOXIFLOXACIN HYDROCHLORIDE
     Indication: Infection prophylaxis
     Dosage: 0.40 GRAM, QD
     Route: 042
     Dates: start: 20240531, end: 20240603
  17. DEXAMETHASONE SODIUM PHOSPHATE [Concomitant]
     Active Substance: DEXAMETHASONE SODIUM PHOSPHATE
     Indication: Prophylaxis of nausea and vomiting
     Dosage: 2.50 MILLIGRAM, QD
     Route: 042
     Dates: start: 20240602, end: 20240603
  18. CARBOPLATIN [Concomitant]
     Active Substance: CARBOPLATIN
     Indication: Lymphoma
     Dosage: 500 MILLIGRAM
     Route: 042
     Dates: start: 20240531, end: 20240531
  19. IFOSFAMIDE [Concomitant]
     Active Substance: IFOSFAMIDE
     Indication: Lymphoma
     Dosage: 5 GRAM
     Route: 042
     Dates: start: 20240601, end: 20240602
  20. MESNA [Concomitant]
     Active Substance: MESNA
     Indication: Prophylaxis
     Dosage: 10000 MILLIGRAM
     Route: 042
     Dates: start: 20240601, end: 20240601
  21. FOSAPREPITANT DIMEGLUMINE [Concomitant]
     Active Substance: FOSAPREPITANT\FOSAPREPITANT DIMEGLUMINE
     Indication: Prophylaxis of nausea and vomiting
     Dosage: 0.15 GRAM
     Route: 042
     Dates: start: 20240601, end: 20240601
  22. PEGYLATED RECOMBINANT HUMAN GRANULOCYTE COLONY STIMULATING FACTOR [Concomitant]
     Indication: White blood cell count increased
     Dosage: 6 MILLIGRAM
     Route: 058
     Dates: start: 20240603, end: 20240603
  23. PROMETHAZINE HYDROCHLORIDE [Concomitant]
     Active Substance: PROMETHAZINE HYDROCHLORIDE
     Dosage: 25 MILLIGRAM
     Route: 030

REACTIONS (5)
  - Hypokalaemia [Recovered/Resolved]
  - White blood cell count decreased [Recovered/Resolved]
  - Neutrophil count decreased [Recovering/Resolving]
  - Platelet count decreased [Recovered/Resolved]
  - Off label use [Unknown]

NARRATIVE: CASE EVENT DATE: 20240529
